FAERS Safety Report 20303429 (Version 4)
Quarter: 2022Q1

REPORT INFORMATION
  Report Type: Report from Study
  Country: TR (occurrence: TR)
  Receive Date: 20220106
  Receipt Date: 20220121
  Transmission Date: 20220424
  Serious: Yes (Life-Threatening, Other)
  Sender: FDA-Public Use
  Company Number: TR-TEVA-2021-TR-1995504

PATIENT
  Age: 50 Year
  Sex: Male

DRUGS (7)
  1. CAPECITABINE [Suspect]
     Active Substance: CAPECITABINE
     Indication: Thymic cancer metastatic
     Dosage: TWELVE CYCLES
     Route: 065
  2. DOXORUBICIN [Suspect]
     Active Substance: DOXORUBICIN
     Indication: Thymic cancer metastatic
     Dosage: FIRST-LINE TREATMENT
     Route: 065
  3. CISPLATIN [Suspect]
     Active Substance: CISPLATIN
     Indication: Thymic cancer metastatic
     Dosage: FIRST-LINE TREATMENT, LATER AGAIN RECEIVED FIVE CYCLES WITH DOCETAXEL
     Route: 065
  4. VINCRISTINE [Suspect]
     Active Substance: VINCRISTINE
     Indication: Thymic cancer metastatic
     Dosage: FIRST-LINE TREATMENT
     Route: 065
  5. CYCLOPHOSPHAMIDE [Suspect]
     Active Substance: CYCLOPHOSPHAMIDE
     Indication: Thymic cancer metastatic
     Dosage: FIRST-LINE TREATMENT
     Route: 065
  6. GEMCITABINE [Suspect]
     Active Substance: GEMCITABINE
     Indication: Thymic cancer metastatic
     Dosage: TWELVE CYCLES
     Route: 065
  7. DOCETAXEL [Suspect]
     Active Substance: DOCETAXEL
     Indication: Thymic cancer metastatic
     Dosage: FIVE CYCLES
     Route: 065

REACTIONS (1)
  - Treatment failure [Unknown]
